FAERS Safety Report 20144254 (Version 2)
Quarter: 2021Q4

REPORT INFORMATION
  Report Type: Spontaneous
  Country: JP (occurrence: JP)
  Receive Date: 20211203
  Receipt Date: 20211209
  Transmission Date: 20220303
  Serious: Yes (Hospitalization, Other)
  Sender: FDA-Public Use
  Company Number: JP-002147023-NVSJ2021JP011659

PATIENT
  Sex: Male
  Weight: 57.4 kg

DRUGS (1)
  1. LUCENTIS [Suspect]
     Active Substance: RANIBIZUMAB
     Indication: Age-related macular degeneration
     Dosage: 0.5 MG
     Route: 031
     Dates: start: 20210604, end: 20210604

REACTIONS (7)
  - Uveitis [Recovering/Resolving]
  - Eye inflammation [Recovering/Resolving]
  - Vitreal cells [Unknown]
  - Vitreous opacities [Unknown]
  - Anterior chamber inflammation [Unknown]
  - Vitritis [Unknown]
  - Retinal haemorrhage [Unknown]

NARRATIVE: CASE EVENT DATE: 20210607
